FAERS Safety Report 6501366-9 (Version None)
Quarter: 2009Q4

REPORT INFORMATION
  Report Type: 
  Country: None (occurrence: None)
  Receive Date: 20091215
  Receipt Date: 20091215
  Transmission Date: 20100525
  Serious: Yes (Death)
  Sender: FDA-Public Use
  Company Number: None

PATIENT
  Age: 63 Year
  Sex: Male
  Weight: 102.0593 kg

DRUGS (1)
  1. KETAMINE HCL [Suspect]
     Dosage: IV
     Route: 042
     Dates: start: 20080502, end: 20080502

REACTIONS (1)
  - ADVERSE DRUG REACTION [None]
